FAERS Safety Report 9463242 (Version 1)
Quarter: 2013Q3

REPORT INFORMATION
  Report Type: Report from Study
  Country: TW (occurrence: TW)
  Receive Date: 20130818
  Receipt Date: 20130818
  Transmission Date: 20140515
  Serious: Yes (Death, Hospitalization)
  Sender: FDA-Public Use
  Company Number: TW-SANOFI-AVENTIS-2013SA001018

PATIENT
  Age: 85 Year
  Sex: Female
  Weight: 48.9 kg

DRUGS (9)
  1. CLOPIDOGREL BISULFATE [Suspect]
     Indication: ACUTE CORONARY SYNDROME
     Route: 048
     Dates: start: 20121010
  2. ASPIRIN [Suspect]
     Indication: ACUTE CORONARY SYNDROME
     Route: 048
     Dates: start: 20121010
  3. PARACETAMOL [Concomitant]
     Route: 048
  4. KALIMATE [Concomitant]
     Route: 048
  5. CONCOR [Concomitant]
     Route: 048
  6. FAMOTIDINE [Concomitant]
     Route: 048
  7. NOVOMIX [Concomitant]
     Route: 058
  8. NOVONORM [Concomitant]
     Route: 048
  9. IMDUR [Concomitant]
     Route: 048

REACTIONS (3)
  - Urinary tract infection [Recovered/Resolved]
  - Pneumonia [Recovered/Resolved]
  - Urosepsis [Fatal]
